FAERS Safety Report 4938436-2 (Version None)
Quarter: 2006Q1

REPORT INFORMATION
  Report Type: 
  Country: None (occurrence: None)
  Receive Date: 20060306
  Receipt Date: 20060216
  Transmission Date: 20060701
  Serious: Yes (Death)
  Sender: FDA-Public Use
  Company Number: USA041082676

PATIENT
  Age: 38 Year
  Sex: Male

DRUGS (2)
  1. ZYPREXA [Suspect]
     Dosage: 2.5 MG, 3/D, ORAL
     Route: 048
     Dates: start: 20020725
  2. PAXIL [Concomitant]

REACTIONS (12)
  - AKATHISIA [None]
  - APATHY [None]
  - COMPLETED SUICIDE [None]
  - CONDITION AGGRAVATED [None]
  - DEPRESSION [None]
  - FEELING ABNORMAL [None]
  - GUN SHOT WOUND [None]
  - HEADACHE [None]
  - IMPAIRED SELF-CARE [None]
  - SLEEP DISORDER [None]
  - SOMATOFORM DISORDER [None]
  - THINKING ABNORMAL [None]
